FAERS Safety Report 18780134 (Version 1)
Quarter: 2021Q1

REPORT INFORMATION
  Report Type: Spontaneous
  Country: US (occurrence: US)
  Receive Date: 20210122
  Receipt Date: 20210122
  Transmission Date: 20210419
  Serious: Yes (Other)
  Sender: FDA-Public Use
  Company Number: None

PATIENT
  Age: 63 Year
  Sex: Male
  Weight: 80.5 kg

DRUGS (7)
  1. SENNA?DOCUSATE TABLET [Concomitant]
  2. PROCHLORPERAZINE 10 MG TABLET [Concomitant]
  3. FLUTICASONE PROPIONATE 50 MCG/ACT NASAL SUSPENSION [Concomitant]
  4. HYDROCORTISONE 2.5% EXTERNALLY CREAM [Concomitant]
  5. ONDANSETRON 8 MG TABLET [Concomitant]
     Active Substance: ONDANSETRON
  6. BAMLANIVIMAB. [Suspect]
     Active Substance: BAMLANIVIMAB
     Indication: COVID-19
     Dates: start: 20210108, end: 20210108
  7. ENTECAVIR 0.5 MG TABLET [Concomitant]

REACTIONS (2)
  - Chills [None]
  - Dyspnoea [None]

NARRATIVE: CASE EVENT DATE: 20210108
